FAERS Safety Report 4871821-6 (Version None)
Quarter: 2006Q1

REPORT INFORMATION
  Report Type: 
  Country: None (occurrence: None)
  Receive Date: 20060104
  Receipt Date: 20051005
  Transmission Date: 20060701
  Serious: Yes (Hospitalization, Disabling)
  Sender: FDA-Public Use
  Company Number: US-MERCK-0510USA04117

PATIENT
  Age: 48 Year
  Sex: Female
  Weight: 111 kg

DRUGS (6)
  1. VIOXX [Suspect]
     Indication: PAIN
     Route: 048
     Dates: start: 20040101, end: 20041201
  2. ZOCOR [Concomitant]
     Route: 065
  3. PLAVIX [Concomitant]
     Route: 065
  4. LASIX [Concomitant]
     Route: 065
  5. ZOLOFT [Concomitant]
     Route: 065
  6. NITROQUICK [Concomitant]
     Route: 065

REACTIONS (11)
  - ABDOMINAL HERNIA [None]
  - CARDIOVASCULAR DISORDER [None]
  - CHEST PAIN [None]
  - DEEP VEIN THROMBOSIS [None]
  - DEPRESSION [None]
  - DYSPNOEA [None]
  - HEART RATE IRREGULAR [None]
  - HYPERTENSION [None]
  - INCISIONAL HERNIA [None]
  - PRESCRIBED OVERDOSE [None]
  - THROMBOSIS [None]
